FAERS Safety Report 6822159-9 (Version None)
Quarter: 2010Q3

REPORT INFORMATION
  Report Type: 
  Country: None (occurrence: None)
  Receive Date: 20100708
  Receipt Date: 20100629
  Transmission Date: 20110219
  Serious: Yes (Hospitalization)
  Sender: FDA-Public Use
  Company Number: US-JNJFOC-20100700430

PATIENT
  Age: 39 Year
  Sex: Male
  Weight: 113.4 kg

DRUGS (5)
  1. FENTANYL [Suspect]
     Indication: PAIN IN EXTREMITY
     Route: 062
  2. FENTANYL [Suspect]
     Indication: BACK PAIN
     Route: 062
  3. FENTANYL [Suspect]
     Route: 062
  4. FENTANYL [Suspect]
     Route: 062
  5. DILAUDID [Concomitant]
     Indication: PAIN
     Route: 048

REACTIONS (3)
  - DRUG EFFECT DECREASED [None]
  - OEDEMA PERIPHERAL [None]
  - WRONG TECHNIQUE IN DRUG USAGE PROCESS [None]
